FAERS Safety Report 5924059-5 (Version None)
Quarter: 2008Q4

REPORT INFORMATION
  Report Type: 
  Country: None (occurrence: None)
  Receive Date: 20081020
  Receipt Date: 20081008
  Transmission Date: 20090506
  Serious: Yes (Death)
  Sender: FDA-Public Use
  Company Number: JP-SANOFI-SYNTHELABO-A01200811121

PATIENT
  Sex: Male

DRUGS (15)
  1. MYSLEE [Suspect]
     Indication: INSOMNIA
     Route: 048
     Dates: start: 20060601, end: 20080318
  2. MYSLEE [Suspect]
     Indication: DEPRESSION
     Route: 048
     Dates: start: 20060601, end: 20080318
  3. DEPAS [Suspect]
     Indication: INSOMNIA
     Route: 048
     Dates: start: 20060601, end: 20080318
  4. DEPAS [Suspect]
     Indication: DEPRESSION
     Route: 048
     Dates: start: 20060601, end: 20080318
  5. LENDORMIN [Suspect]
     Indication: INSOMNIA
     Route: 048
     Dates: start: 20060601, end: 20080318
  6. LENDORMIN [Suspect]
     Indication: DEPRESSION
     Route: 048
     Dates: start: 20060601, end: 20080318
  7. ZOLOFT [Suspect]
     Indication: INSOMNIA
     Route: 048
     Dates: start: 20071001, end: 20080318
  8. ZOLOFT [Suspect]
     Indication: DEPRESSION
     Route: 048
     Dates: start: 20071001, end: 20080318
  9. TETRAMIDE [Suspect]
     Indication: INSOMNIA
     Route: 048
     Dates: start: 20060601, end: 20080318
  10. TETRAMIDE [Suspect]
     Indication: DEPRESSION
     Route: 048
     Dates: start: 20060601, end: 20080318
  11. TOLEDOMIN [Suspect]
     Indication: INSOMNIA
     Route: 048
     Dates: start: 20060601, end: 20080318
  12. TOLEDOMIN [Suspect]
     Indication: DEPRESSION
     Route: 048
     Dates: start: 20060601, end: 20080318
  13. SOLANAX [Suspect]
     Indication: INSOMNIA
     Route: 048
     Dates: start: 20060601, end: 20080318
  14. SOLANAX [Suspect]
     Indication: DEPRESSION
     Route: 048
     Dates: start: 20060601, end: 20080318
  15. HARNAL [Suspect]
     Indication: DRUG USE FOR UNKNOWN INDICATION
     Route: 048
     Dates: end: 20080318

REACTIONS (3)
  - ENCEPHALOPATHY [None]
  - HAEMORRHAGE [None]
  - HEPATITIS FULMINANT [None]
